FAERS Safety Report 11940830 (Version 4)
Quarter: 2016Q1

REPORT INFORMATION
  Report Type: Spontaneous
  Country: ME (occurrence: ME)
  Receive Date: 20160122
  Receipt Date: 20160311
  Transmission Date: 20160526
  Serious: Yes (Death, Hospitalization, Other)
  Sender: FDA-Public Use
  Company Number: PHHY2015ME169799

PATIENT
  Age: 61 Year
  Sex: Female

DRUGS (6)
  1. AMLOPIN [Concomitant]
     Active Substance: AMLODIPINE BESYLATE
     Indication: HYPERTENSION
     Dosage: 1 DF, QD
     Route: 065
     Dates: start: 2007
  2. SIOFOR [Concomitant]
     Active Substance: METFORMIN HYDROCHLORIDE
     Indication: DIABETES MELLITUS
     Dosage: 3 DF, QD
     Route: 065
     Dates: start: 2007
  3. AFINITOR [Suspect]
     Active Substance: EVEROLIMUS
     Dosage: UNK
     Route: 048
     Dates: start: 20151118, end: 20151118
  4. AFINITOR [Suspect]
     Active Substance: EVEROLIMUS
     Indication: METASTATIC RENAL CELL CARCINOMA
     Dosage: 10 MG
     Route: 048
     Dates: start: 20150916, end: 201510
  5. PRILENAP H [Concomitant]
     Indication: HYPERTENSION
     Dosage: 1 DF, QD
     Route: 065
     Dates: start: 2007
  6. ZOMETA [Suspect]
     Active Substance: ZOLEDRONIC ACID
     Indication: METASTATIC RENAL CELL CARCINOMA
     Dosage: 4 MG, UNK
     Route: 042
     Dates: start: 20150203, end: 20151023

REACTIONS (16)
  - Renal failure [Recovering/Resolving]
  - Cough [Recovering/Resolving]
  - Bacterial infection [Unknown]
  - Metastases to bone [Unknown]
  - General physical health deterioration [Unknown]
  - Fatigue [Unknown]
  - Malignant neoplasm progression [Unknown]
  - Metastases to lymph nodes [Unknown]
  - White blood cell count increased [Unknown]
  - Inflammation [Recovering/Resolving]
  - Metastatic renal cell carcinoma [Fatal]
  - Productive cough [Recovering/Resolving]
  - Anaemia [Recovering/Resolving]
  - Pyrexia [Unknown]
  - Bronchitis [Unknown]
  - Metastases to lung [Unknown]

NARRATIVE: CASE EVENT DATE: 201510
